FAERS Safety Report 20430615 (Version 1)
Quarter: 2022Q1

REPORT INFORMATION
  Report Type: Spontaneous
  Country: US (occurrence: None)
  Receive Date: 20220203
  Receipt Date: 20220203
  Transmission Date: 20220423
  Serious: Yes (Death)
  Sender: FDA-Public Use
  Company Number: None

PATIENT
  Age: 65 Year
  Sex: Female
  Weight: 155.6 kg

DRUGS (1)
  1. TOCILIZUMAB [Suspect]
     Active Substance: TOCILIZUMAB
     Indication: COVID-19
     Dosage: FREQUENCY : ONCE;?
     Route: 040
     Dates: start: 20220121, end: 20220121

REACTIONS (5)
  - Pneumothorax [None]
  - Ventricular tachycardia [None]
  - Cardiac arrest [None]
  - Haemodynamic instability [None]
  - Death [None]

NARRATIVE: CASE EVENT DATE: 20220131
